FAERS Safety Report 24405068 (Version 1)
Quarter: 2024Q4

REPORT INFORMATION
  Report Type: Report from Study
  Country: US (occurrence: US)
  Receive Date: 20241007
  Receipt Date: 20241007
  Transmission Date: 20250115
  Serious: No
  Sender: ROCHE
  Company Number: US-ROCHE-3559407

PATIENT
  Sex: Male
  Weight: 104.33 kg

DRUGS (17)
  1. GAZYVA [Suspect]
     Active Substance: OBINUTUZUMAB
     Indication: Lymphoma
     Route: 042
     Dates: start: 20240430, end: 20240430
  2. GAZYVA [Suspect]
     Active Substance: OBINUTUZUMAB
     Route: 042
     Dates: start: 20240501
  3. RITUXAN [Suspect]
     Active Substance: RITUXIMAB
     Indication: Lymphoma
     Route: 041
     Dates: start: 2007, end: 2009
  4. LOSARTAN POTASSIUM [Concomitant]
     Active Substance: LOSARTAN POTASSIUM
  5. KLOR-CON [Concomitant]
     Active Substance: POTASSIUM CHLORIDE
  6. SLO-MAG [Concomitant]
  7. VITAMIN D3 [Concomitant]
     Active Substance: CHOLECALCIFEROL
  8. VITAMINS [Concomitant]
     Active Substance: VITAMINS
  9. ASPIRIN [Concomitant]
     Active Substance: ASPIRIN
  10. LOVAZA [Concomitant]
     Active Substance: OMEGA-3-ACID ETHYL ESTERS
  11. FLUTICASONE [Concomitant]
     Active Substance: FLUTICASONE
  12. AZELASTINE [Concomitant]
     Active Substance: AZELASTINE
  13. IRON [Concomitant]
     Active Substance: IRON
  14. VITAMIN B12 [Concomitant]
     Active Substance: CYANOCOBALAMIN
  15. METOPROLOL [Concomitant]
     Active Substance: METOPROLOL
  16. MOUNJARO [Concomitant]
     Active Substance: TIRZEPATIDE
  17. LIPOFEN [Concomitant]
     Active Substance: FENOFIBRATE

REACTIONS (5)
  - Hypotension [Recovered/Resolved]
  - Urticaria [Recovered/Resolved]
  - Immunodeficiency [Not Recovered/Not Resolved]
  - Drug ineffective [Unknown]
  - White blood cell count decreased [Unknown]

NARRATIVE: CASE EVENT DATE: 20240430
